FAERS Safety Report 5248009-2 (Version None)
Quarter: 2007Q1

REPORT INFORMATION
  Report Type: 
  Country: None (occurrence: None)
  Receive Date: 20070222
  Receipt Date: 20070208
  Transmission Date: 20070707
  Serious: Yes (Hospitalization)
  Sender: FDA-Public Use
  Company Number: TCI2007A00665

PATIENT
  Age: 77 Year
  Sex: Male

DRUGS (4)
  1. ACTOS [Suspect]
     Indication: DIABETES MELLITUS
     Dosage: 30 MG (30 MG, 1 IN 1 D) PER ORAL
     Route: 048
     Dates: start: 20070115
  2. BASEN (VOGLIBOSE) [Concomitant]
  3. GLUFAST (MITIGLINIDE CALCIUM HYDRATE) [Concomitant]
  4. MEDET (METFORMIN (HYDROCHLORIDE) [Concomitant]

REACTIONS (3)
  - ATRIAL FIBRILLATION [None]
  - CARDIAC FAILURE [None]
  - CARDIOMEGALY [None]
